FAERS Safety Report 4730039-8 (Version None)
Quarter: 2005Q3

REPORT INFORMATION
  Report Type: 
  Country: None (occurrence: None)
  Receive Date: 20050728
  Receipt Date: 20050718
  Transmission Date: 20060218
  Serious: Yes (Hospitalization)
  Sender: FDA-Public Use
  Company Number: 2005103679

PATIENT
  Age: 56 Year
  Sex: Female
  Weight: 90 kg

DRUGS (19)
  1. ACUILIX (HYDROCOROTHIAZIDE, QUINAPRIL) [Suspect]
     Indication: ESSENTIAL HYPERTENSION
     Dosage: 1 DOSE FORM (DAILY INTERVAL:  EVERY DAY), ORAL
     Route: 048
     Dates: end: 20050611
  2. MEDIATOR (BENFLUOREX HYDROCHLORIDE) [Suspect]
     Indication: ESSENTIAL HYPERTENSION
     Dosage: 450 MG (150 MG, TID INTERVAL:  EVERY DAY), ORAL
     Route: 048
     Dates: end: 20050611
  3. BEFIZAL (BEZAFIBRATE) [Suspect]
     Indication: ILL-DEFINED DISORDER
     Dosage: 400 MG (DAILY INTERVAL  EVERY DAY), ORAL
     Route: 048
     Dates: end: 20050611
  4. NIFEDIPINE [Suspect]
     Indication: ESSENTIAL HYPERTENSION
     Dosage: 1 DOSE FORM (DAILY INTERVAL:  EVERY DAY) , ORAL
     Route: 048
     Dates: start: 20050611
  5. ATENOLOL [Suspect]
     Indication: ESSENTIAL HYPERTENSION
     Dosage: 1 DOSE FORM (DAILY INTERVAL:  EVERY DAY), ORAL
     Route: 048
     Dates: end: 20050611
  6. ALLOPURINOL [Suspect]
     Indication: ILL-DEFINED DISORDER
     Dosage: 900 MG (300 MG, TID INTERVAL:  EVERY DAY), ORAL
     Route: 048
     Dates: end: 20050611
  7. DAFLON (DIOSMIN) [Suspect]
     Indication: ILL-DEFINED DISORDER
     Dosage: 800 MG (400 MG, BID INTERVAL:  EVERY DAY), ORAL
     Route: 048
     Dates: end: 20050611
  8. LEGALON (SILYMARIN) [Suspect]
     Indication: ILL-DEFINED DISORDER
  9. POTASSIUM CHLORIDE [Suspect]
     Indication: ILL-DEFINED DISORDER
  10. GLYCERIN (GLYCERIN) [Suspect]
     Indication: ILL-DEFINED DISORDER
     Dosage: TOPICAL
     Route: 061
  11. METHADONE (METHADONE) [Suspect]
     Indication: ILL-DEFINED DISORDER
     Dosage: TOPICAL
     Route: 061
  12. DEXERIL ^PIERRE FABRE^ (GLYCEROL, PARAFFIN, LIQUID, WHITE SOFT PARAFFI [Suspect]
     Indication: ILL-DEFINED DISORDER
     Dosage: TOPICAL
     Route: 061
  13. CALAMINE LOTION WITH ANTIHISTAMINE (DIPHENHYDRAMINE, CALAMINE) [Suspect]
     Indication: ILL-DEFINED DISORDER
     Dosage: TOPICAL
     Route: 061
  14. ZINC OXIDE (ZINC OXIDE) [Suspect]
     Indication: ILL-DEFINED DISORDER
     Dosage: TOPICAL
     Route: 061
  15. FLUTICASONE PROPIONATE [Suspect]
     Indication: ILL-DEFINED DISORDER
     Dosage: TOPICAL
     Route: 061
  16. PREDNISONE TAB [Suspect]
     Indication: ILL-DEFINED DISORDER
     Dosage: ORAL
     Route: 048
  17. AERIUS (DESLORATADINE) [Suspect]
     Indication: ILL-DEFINED DISORDER
     Dosage: ORAL
     Route: 048
  18. ARIMIDEX [Concomitant]
  19. FUROSEMIDE [Concomitant]

REACTIONS (12)
  - ASTHENIA [None]
  - ECZEMA [None]
  - EOSINOPHILIA [None]
  - GENERAL PHYSICAL CONDITION ABNORMAL [None]
  - LEUKOCYTURIA [None]
  - LIPASE INCREASED [None]
  - NORMOCHROMIC NORMOCYTIC ANAEMIA [None]
  - PROTEINURIA [None]
  - PRURITUS [None]
  - RENAL FAILURE [None]
  - SERUM FERRITIN INCREASED [None]
  - TUBULOINTERSTITIAL NEPHRITIS [None]
